FAERS Safety Report 14098587 (Version 1)
Quarter: 2017Q4

REPORT INFORMATION
  Report Type: Spontaneous
  Country: US (occurrence: None)
  Receive Date: 20171017
  Receipt Date: 20171017
  Transmission Date: 20180321
  Serious: No
  Sender: FDA-Public Use
  Company Number: None

PATIENT
  Age: 30 Year
  Sex: Female
  Weight: 71.67 kg

DRUGS (2)
  1. SUBOXONE [Suspect]
     Active Substance: BUPRENORPHINE HYDROCHLORIDE\NALOXONE HYDROCHLORIDE
     Indication: DRUG DEPENDENCE
     Dosage: 8-2MG 2 FILMS BID SL PO
     Route: 060
     Dates: start: 201605, end: 201701
  2. SUBOXONE [Suspect]
     Active Substance: BUPRENORPHINE HYDROCHLORIDE\NALOXONE HYDROCHLORIDE
     Indication: DRUG DEPENDENCE
     Dosage: 8-2MG 2 TABS BID SL PO
     Route: 048
     Dates: start: 201701, end: 201702

REACTIONS (4)
  - Wound [None]
  - Hypertension [None]
  - Oedema [None]
  - Impaired healing [None]

NARRATIVE: CASE EVENT DATE: 20170216
